FAERS Safety Report 7269620-3 (Version None)
Quarter: 2011Q1

REPORT INFORMATION
  Report Type: 
  Country: None (occurrence: None)
  Receive Date: 20110125
  Receipt Date: 20110119
  Transmission Date: 20110831
  Serious: Yes (Other)
  Sender: FDA-Public Use
  Company Number: 2011MA000486

PATIENT
  Age: 38 Year
  Sex: Female

DRUGS (5)
  1. MELOXICAM [Suspect]
     Indication: RHEUMATOID ARTHRITIS
     Dosage: 15 MG; PO
     Route: 048
     Dates: start: 20101116, end: 20101220
  2. IBUPROFEN [Concomitant]
  3. LANSOPRAZOLE [Concomitant]
  4. PARACETAMOL [Concomitant]
  5. DIHYDROCODEINE BITARTRATE INJ [Concomitant]

REACTIONS (5)
  - TINNITUS [None]
  - PARAESTHESIA [None]
  - HEADACHE [None]
  - PARALYSIS [None]
  - PAIN IN EXTREMITY [None]
